FAERS Safety Report 6538277-9 (Version None)
Quarter: 2010Q1

REPORT INFORMATION
  Report Type: 
  Country: None (occurrence: None)
  Receive Date: 20100112
  Receipt Date: 20100112
  Transmission Date: 20100710
  Serious: Yes (Life-Threatening)
  Sender: FDA-Public Use
  Company Number: None

PATIENT
  Age: 51 Year
  Sex: Female
  Weight: 86.1834 kg

DRUGS (1)
  1. MOXIFLOXACIN HCL [Suspect]
     Indication: ACUTE SINUSITIS
     Dosage: 7 PILLS - 400 MG. EACH ONE FOR 7 DAYS BUCCAL
     Route: 002
     Dates: start: 20091231, end: 20100102

REACTIONS (10)
  - ANXIETY [None]
  - ARTHRALGIA [None]
  - BACK PAIN [None]
  - CHAPPED LIPS [None]
  - CONFUSIONAL STATE [None]
  - DRUG HYPERSENSITIVITY [None]
  - FEAR [None]
  - FEELING ABNORMAL [None]
  - PAIN IN EXTREMITY [None]
  - RENAL PAIN [None]
